FAERS Safety Report 6077786-6 (Version None)
Quarter: 2009Q1

REPORT INFORMATION
  Report Type: 
  Country: None (occurrence: None)
  Receive Date: 20090213
  Receipt Date: 20090202
  Transmission Date: 20090719
  Serious: Yes (Other)
  Sender: FDA-Public Use
  Company Number: FR-PFIZER INC-2009165101

PATIENT

DRUGS (1)
  1. AROMASIN [Suspect]
     Indication: BREAST CANCER
     Dates: start: 20050101

REACTIONS (2)
  - EYE DISORDER [None]
  - PITUITARY TUMOUR BENIGN [None]
